FAERS Safety Report 10217294 (Version 1)
Quarter: 2014Q2

REPORT INFORMATION
  Report Type: Spontaneous
  Country: NO (occurrence: NO)
  Receive Date: 20140604
  Receipt Date: 20140604
  Transmission Date: 20141212
  Serious: Yes (Disabling)
  Sender: FDA-Public Use
  Company Number: PHHY2014NO064459

PATIENT
  Age: 23 Year
  Sex: Male

DRUGS (19)
  1. DEXAMETHASONE [Suspect]
     Indication: T-CELL TYPE ACUTE LEUKAEMIA
     Route: 048
     Dates: start: 20071031, end: 2009
  2. ONCOVIN [Suspect]
     Indication: T-CELL TYPE ACUTE LEUKAEMIA
     Route: 042
     Dates: start: 20070425, end: 2009
  3. METHOTREXATE [Suspect]
     Indication: T-CELL TYPE ACUTE LEUKAEMIA
     Dates: start: 20070425, end: 2009
  4. METHOTREXATE [Suspect]
     Indication: PANCYTOPENIA
  5. VINCRISTINE [Suspect]
     Indication: T-CELL TYPE ACUTE LEUKAEMIA
     Dosage: 2 MG, (DAY 47 OF FIRST LSA2L2 CYCLE)
     Route: 042
     Dates: start: 20080713, end: 20080713
  6. CYTARABINE [Suspect]
     Indication: T-CELL TYPE ACUTE LEUKAEMIA
     Route: 042
     Dates: start: 20070615, end: 20071214
  7. CYCLOPHOSPHAMIDE [Suspect]
     Indication: T-CELL TYPE ACUTE LEUKAEMIA
     Route: 042
     Dates: start: 20070613, end: 20070711
  8. DAUNORUBICIN [Suspect]
     Indication: ACUTE MYELOID LEUKAEMIA
     Route: 042
     Dates: start: 20080616, end: 20080811
  9. DAUNORUBICIN [Suspect]
     Indication: T-CELL TYPE ACUTE LEUKAEMIA
  10. LANVIS [Suspect]
     Indication: T-CELL TYPE ACUTE LEUKAEMIA
     Route: 048
     Dates: start: 20070613, end: 20080723
  11. L-ASPARAGINASE [Suspect]
     Indication: T-CELL TYPE ACUTE LEUKAEMIA
     Route: 030
     Dates: start: 20070531, end: 20071031
  12. CARMUSTINE [Suspect]
     Indication: T-CELL TYPE ACUTE LEUKAEMIA
     Dates: start: 20080630, end: 20080825
  13. PURINETHOL [Suspect]
     Indication: T-CELL TYPE ACUTE LEUKAEMIA
     Dates: start: 20080213
  14. PURINETHOL [Suspect]
     Indication: PANCYTOPENIA
     Dosage: 150 MG, QD
     Dates: start: 20080924
  15. CYTOSAR [Suspect]
     Indication: T-CELL TYPE ACUTE LEUKAEMIA
     Route: 042
     Dates: start: 20070713, end: 20080903
  16. PREDNISOLON [Suspect]
     Indication: T-CELL TYPE ACUTE LEUKAEMIA
     Dosage: 50 MG, BID
     Dates: start: 20070420, end: 20070424
  17. PREDNISOLON [Suspect]
     Dosage: 65 MG, UNK
     Dates: start: 20070425
  18. HYDROXYUREA [Suspect]
     Indication: T-CELL TYPE ACUTE LEUKAEMIA
     Dosage: 5000 MG, QD
     Dates: start: 20080611, end: 20080614
  19. DOXORUBICIN HCL [Suspect]
     Indication: T-CELL TYPE ACUTE LEUKAEMIA
     Route: 042
     Dates: start: 20070425, end: 20071114

REACTIONS (2)
  - Deafness [Not Recovered/Not Resolved]
  - Osteonecrosis [Not Recovered/Not Resolved]
